FAERS Safety Report 8364620-4 (Version None)
Quarter: 2012Q2

REPORT INFORMATION
  Report Type: 
  Country: None (occurrence: None)
  Receive Date: 20120516
  Receipt Date: 20120510
  Transmission Date: 20120825
  Serious: Yes (Death)
  Sender: FDA-Public Use
  Company Number: TH-JNJFOC-20120512001

PATIENT

DRUGS (22)
  1. METHOTREXATE [Suspect]
     Dosage: DAYS 1, 8
     Route: 037
  2. ETOPOSIDE [Suspect]
     Indication: ACUTE LYMPHOCYTIC LEUKAEMIA
     Dosage: DAYS 22, 29, 32
     Route: 065
  3. METHOTREXATE [Suspect]
     Dosage: AGE-DEPENDENT DAYS 1, 22 (8, 15) EXTRA ON DAYS 8 AND 15 FOR PATIENTS WITH CNS-2 OR CNS-3 STATUS
     Route: 037
  4. METHOTREXATE [Suspect]
     Dosage: WEEKLY
     Route: 065
  5. METHOTREXATE [Suspect]
     Dosage: HIGH DOSE, L: 1.5 G/M2, S: 2 G/M2, H: 5 G/M2 ON DAYS 1, 8
     Route: 065
  6. ELSPAR [Suspect]
     Indication: ACUTE LYMPHOCYTIC LEUKAEMIA
     Dosage: DAYS 2, 4, 6, 8, 10, 12,   10000 U/M2/DOSE FOR L/S AND 250000 U/M2/DOSE INTRAMUSCULAR FOR H
     Route: 065
  7. METHOTREXATE [Suspect]
     Dosage: HIGH DOSE, L: 1.5 G/M2, S: 2 G/M2, H: 5 G/M2 ON DAYS 1, 8, EVERY 8 WEEKS DURING FIRST YEAR
     Route: 065
  8. DOXORUBICIN HCL [Suspect]
     Indication: ACUTE LYMPHOCYTIC LEUKAEMIA
     Route: 042
  9. VINCRISTINE [Suspect]
     Indication: ACUTE LYMPHOCYTIC LEUKAEMIA
     Dosage: EVERY 4 WEEKS
     Route: 065
  10. CYTARABINE [Suspect]
     Indication: ACUTE LYMPHOCYTIC LEUKAEMIA
     Dosage: S, H: 300MG/M2/DOSE EVERY 4 WEEKS
     Route: 065
  11. CYTARABINE [Suspect]
     Dosage: DAYS 22, 29, 32
     Route: 065
  12. CYTARABINE [Suspect]
     Dosage: HIGH DOSE 3G/M2 Q 12 H ON DAYS 43, 44
     Route: 065
  13. MERCAPTOPURINE [Suspect]
     Indication: ACUTE LYMPHOCYTIC LEUKAEMIA
     Dosage: DAILY
     Route: 065
  14. COTRIM [Concomitant]
     Indication: ANTIFUNGAL PROPHYLAXIS
     Route: 065
  15. PREDNISONE TAB [Suspect]
     Indication: ACUTE LYMPHOCYTIC LEUKAEMIA
     Route: 065
  16. ETOPOSIDE [Suspect]
     Dosage: EVERY 8 WEEKS
     Route: 065
  17. VINCRISTINE [Suspect]
     Dosage: DAYS 1, 8, 15, 22
     Route: 065
  18. METHOTREXATE [Suspect]
     Dosage: DAYS 1, 22
     Route: 037
  19. MERCAPTOPURINE [Suspect]
     Route: 065
  20. CYCLOPHOSPHAMIDE [Suspect]
     Indication: ACUTE LYMPHOCYTIC LEUKAEMIA
     Route: 065
  21. DEXAMETHASONE [Suspect]
     Indication: ACUTE LYMPHOCYTIC LEUKAEMIA
     Route: 065
  22. METHOTREXATE [Suspect]
     Indication: ACUTE LYMPHOCYTIC LEUKAEMIA
     Dosage: L: EVERY 6-8 WEEKS DURING FIRST YEAR, S/H: EVERY 4 WEEKS DURING FIRST YEAR
     Route: 037

REACTIONS (2)
  - BACTERIAL INFECTION [None]
  - OFF LABEL USE [None]
